FAERS Safety Report 6857369-8 (Version None)
Quarter: 2010Q3

REPORT INFORMATION
  Report Type: 
  Country: None (occurrence: None)
  Receive Date: 20100719
  Receipt Date: 20100709
  Transmission Date: 20110219
  Serious: Yes (Other)
  Sender: FDA-Public Use
  Company Number: NL-PFIZER INC-2010083456

PATIENT
  Age: 50 Year
  Sex: Female

DRUGS (2)
  1. SOLU-MEDROL [Suspect]
     Indication: MULTIPLE SCLEROSIS
     Dosage: 1000 MG, UNK
     Route: 042
  2. KIOVIG [Concomitant]
     Dosage: UNK

REACTIONS (3)
  - AGITATION [None]
  - DYSGEUSIA [None]
  - HEADACHE [None]
